FAERS Safety Report 13885766 (Version 3)
Quarter: 2017Q4

REPORT INFORMATION
  Report Type: Spontaneous
  Country: US (occurrence: US)
  Receive Date: 20170821
  Receipt Date: 20171227
  Transmission Date: 20180320
  Serious: Yes (Hospitalization)
  Sender: FDA-Public Use
  Company Number: US-PFIZER INC-2017356526

PATIENT
  Age: 68 Year
  Sex: Female
  Weight: 48 kg

DRUGS (8)
  1. MYRBETRIQ [Concomitant]
     Active Substance: MIRABEGRON
     Indication: URETERAL STENT INSERTION
     Dosage: 21 MG, 1X/DAY, ONCE IN THE EVENING
  2. IBRANCE [Suspect]
     Active Substance: PALBOCICLIB
     Dosage: 100 MG, 1X/DAY
     Route: 048
     Dates: start: 20170928, end: 20171012
  3. FASLODEX [Concomitant]
     Active Substance: FULVESTRANT
     Dosage: UNK
     Dates: start: 201706
  4. IBRANCE [Suspect]
     Active Substance: PALBOCICLIB
     Indication: BREAST CANCER METASTATIC
     Dosage: 125 MG, 1X/DAY
     Route: 048
     Dates: start: 20170613
  5. IBRANCE [Suspect]
     Active Substance: PALBOCICLIB
     Dosage: 75 MG, 1X/DAY
     Route: 048
     Dates: start: 20171012
  6. IBRANCE [Suspect]
     Active Substance: PALBOCICLIB
     Dosage: 75 MG, CYCLIC, 21 DAYS ON AND 7 DAYS OFF
     Route: 048
     Dates: start: 2016
  7. ROSUVASTATIN. [Concomitant]
     Active Substance: ROSUVASTATIN
     Indication: BLOOD CHOLESTEROL ABNORMAL
     Dosage: 5 MG, 1X/DAY, ONCE IN THE EVENING
  8. BAYER ASPIRIN [Concomitant]
     Active Substance: ASPIRIN
     Indication: SUPRAVENTRICULAR EXTRASYSTOLES
     Dosage: 81 MG, 1X/DAY, ONCE IN THE EVENING

REACTIONS (12)
  - Cold sweat [Unknown]
  - Haemoglobin abnormal [Recovered/Resolved]
  - Hallucination [Recovered/Resolved]
  - Red blood cell count abnormal [Recovered/Resolved]
  - Drug abuse [Unknown]
  - Hot flush [Unknown]
  - Blood count abnormal [Recovered/Resolved]
  - Syncope [Unknown]
  - Blood pressure abnormal [Unknown]
  - Heart rate increased [Unknown]
  - Hypertension [Unknown]
  - White blood cell count abnormal [Recovered/Resolved]

NARRATIVE: CASE EVENT DATE: 201707
